FAERS Safety Report 14455579 (Version 7)
Quarter: 2018Q3

REPORT INFORMATION
  Report Type: Spontaneous
  Country: BE (occurrence: BE)
  Receive Date: 20180129
  Receipt Date: 20180810
  Transmission Date: 20181010
  Serious: Yes (Life-Threatening, Hospitalization, Other)
  Sender: FDA-Public Use
  Company Number: BE-BAUSCH-BL-2018-002308

PATIENT
  Age: 58 Year
  Sex: Male

DRUGS (2)
  1. GLICLAZIDE [Concomitant]
     Active Substance: GLICLAZIDE
     Indication: TYPE 2 DIABETES MELLITUS
     Dosage: RETARD
     Route: 065
  2. METFORMIN [Suspect]
     Active Substance: METFORMIN HYDROCHLORIDE
     Indication: TYPE 2 DIABETES MELLITUS
     Dosage: EVERY 8 HOURS
     Route: 065

REACTIONS (3)
  - Toxicity to various agents [Unknown]
  - Lactic acidosis [Unknown]
  - Hyperventilation [Unknown]
